FAERS Safety Report 24318851 (Version 1)
Quarter: 2024Q3

REPORT INFORMATION
  Report Type: Report from Study
  Country: US (occurrence: US)
  Receive Date: 20240913
  Receipt Date: 20240913
  Transmission Date: 20241017
  Serious: Yes (Other)
  Sender: BRISTOL MYERS SQUIBB
  Company Number: US-BRISTOL-MYERS SQUIBB COMPANY-2024-145627

PATIENT
  Sex: Male

DRUGS (2)
  1. ELIQUIS [Suspect]
     Active Substance: APIXABAN
     Indication: Deep vein thrombosis
     Dates: start: 2024, end: 202409
  2. ELIQUIS [Suspect]
     Active Substance: APIXABAN
     Dates: start: 202409

REACTIONS (6)
  - Immobile [Unknown]
  - Blood urine present [Unknown]
  - Nephrolithiasis [Unknown]
  - Anaemia [Unknown]
  - Ureteric haemorrhage [Unknown]
  - Off label use [Unknown]

NARRATIVE: CASE EVENT DATE: 20240101
